FAERS Safety Report 8240509 (Version 2)
Quarter: 2012Q4

REPORT INFORMATION
  Report Type: 
  Country: IN (occurrence: IN)
  Receive Date: 20111111
  Receipt Date: 20121112
  Transmission Date: 20130627
  Serious: Yes (Death, Other)
  Sender: FDA-Public Use
  Company Number: IN-RANBAXY-2011RR-50113

PATIENT
  Age: 52 Year
  Sex: Male

DRUGS (3)
  1. IBUPROFEN [Suspect]
     Indication: PRODUCT USED FOR UNKNOWN INDICATION
     Dosage: 400 mg, q4h
     Route: 048
  2. FULSED [Concomitant]
     Indication: PREMEDICATION
     Dosage: UNK
     Route: 042
  3. BUSCOPAN [Concomitant]
     Indication: PREMEDICATION
     Dosage: UNK
     Route: 065

REACTIONS (1)
  - Duodenal obstruction [Recovered/Resolved]
